FAERS Safety Report 15405847 (Version 2)
Quarter: 2018Q3

REPORT INFORMATION
  Report Type: Report from Study
  Country: US (occurrence: US)
  Receive Date: 20180920
  Receipt Date: 20180921
  Transmission Date: 20181010
  Serious: No
  Sender: FDA-Public Use
  Company Number: US-AMGEN-USASP2018130408

PATIENT
  Age: 59 Year
  Sex: Female

DRUGS (1)
  1. ENBREL [Suspect]
     Active Substance: ETANERCEPT
     Indication: RHEUMATOID ARTHRITIS
     Dosage: 50 MG, QWK
     Route: 065
     Dates: start: 20180917

REACTIONS (9)
  - Therapy non-responder [Unknown]
  - Colitis [Unknown]
  - Lethargy [Unknown]
  - Musculoskeletal stiffness [Unknown]
  - Pain [Unknown]
  - Fatigue [Unknown]
  - Multiple allergies [Unknown]
  - Nausea [Unknown]
  - Headache [Unknown]

NARRATIVE: CASE EVENT DATE: 201809
